FAERS Safety Report 6750826-4 (Version None)
Quarter: 2010Q2

REPORT INFORMATION
  Report Type: 
  Country: None (occurrence: None)
  Receive Date: 20100602
  Receipt Date: 20100521
  Transmission Date: 20101027
  Serious: Yes (Other)
  Sender: FDA-Public Use
  Company Number: US-SHIRE-SPV1-2010-01001

PATIENT

DRUGS (7)
  1. INTUNIV [Suspect]
     Indication: ATTENTION DEFICIT/HYPERACTIVITY DISORDER
     Dosage: 1 MG, 1X/DAY:QD
     Route: 048
     Dates: start: 20100515, end: 20100517
  2. ADDERALL [Concomitant]
     Indication: ATTENTION DEFICIT/HYPERACTIVITY DISORDER
     Dosage: 60 MG, UNKNOWN
     Route: 048
  3. DEXTROAMPHETAMINE                  /00016601/ [Concomitant]
     Indication: ATTENTION DEFICIT/HYPERACTIVITY DISORDER
     Dosage: 10 MG, UNKNOWN
     Route: 048
  4. HYDROCODONE [Concomitant]
     Indication: PAIN
     Dosage: 10 MG, UNKNOWN
  5. ATIVAN [Concomitant]
     Indication: INSOMNIA
     Dosage: 1 MG, 3X/DAY:TID
     Route: 048
  6. XANAX [Concomitant]
     Indication: INSOMNIA
     Dosage: 1 G, 3X/DAY:TID
     Route: 048
  7. VALIUM [Concomitant]
     Indication: INSOMNIA
     Dosage: 10 MG, 2X/DAY:BID
     Route: 048

REACTIONS (10)
  - CONTUSION [None]
  - HEART RATE DECREASED [None]
  - HYPOAESTHESIA [None]
  - HYPOTENSION [None]
  - LETHARGY [None]
  - MYDRIASIS [None]
  - OFF LABEL USE [None]
  - PAIN IN JAW [None]
  - SYNCOPE [None]
  - VERTIGO [None]
